FAERS Safety Report 5704780-4 (Version None)
Quarter: 2008Q2

REPORT INFORMATION
  Report Type: 
  Country: None (occurrence: None)
  Receive Date: 20080414
  Receipt Date: 20080402
  Transmission Date: 20081010
  Serious: Yes (Other)
  Sender: FDA-Public Use
  Company Number: US-PFIZER INC-2008009950

PATIENT
  Sex: Female
  Weight: 98.4 kg

DRUGS (4)
  1. DILANTIN [Suspect]
     Indication: CONVULSION
  2. DILANTIN [Suspect]
     Indication: CONVULSION
  3. DILANTIN [Suspect]
  4. PHENOBARBITAL TAB [Suspect]
     Indication: CONVULSION

REACTIONS (3)
  - ANTICONVULSANT DRUG LEVEL DECREASED [None]
  - HYPERTENSION [None]
  - TYPE 2 DIABETES MELLITUS [None]
